FAERS Safety Report 13497689 (Version 2)
Quarter: 2017Q2

REPORT INFORMATION
  Report Type: Report from Study
  Country: RO (occurrence: RO)
  Receive Date: 20170428
  Receipt Date: 20170511
  Transmission Date: 20170830
  Serious: Yes (Death)
  Sender: FDA-Public Use
  Company Number: RO-KADMON PHARMACEUTICALS, LLC-KAD-201704-00502

PATIENT
  Age: 73 Year
  Sex: Male
  Weight: 85 kg

DRUGS (7)
  1. VIEKIRAX FILM-COATED TABLET [Suspect]
     Active Substance: OMBITASVIR\PARITAPREVIR\RITONAVIR
     Indication: CHRONIC HEPATITIS C
     Route: 048
     Dates: start: 20161017, end: 20170108
  2. RIBAVIRIN. [Suspect]
     Active Substance: RIBAVIRIN
     Dosage: FILM-COATED TABLET
     Route: 048
     Dates: start: 20161203, end: 20161219
  3. EXVIERA FILM-COATED TABLET [Suspect]
     Active Substance: DASABUVIR SODIUM MONOHYDRATE
     Indication: CHRONIC HEPATITIS C
     Route: 048
     Dates: start: 20161017, end: 20170108
  4. METOPROLOL. [Concomitant]
     Active Substance: METOPROLOL
     Indication: HYPERTENSION
     Route: 048
  5. RIBAVIRIN. [Suspect]
     Active Substance: RIBAVIRIN
     Indication: CHRONIC HEPATITIS C
     Dosage: FILM-COATED TABLET
     Route: 048
     Dates: start: 20161017, end: 20161202
  6. RIBAVIRIN. [Suspect]
     Active Substance: RIBAVIRIN
     Dosage: FILM-COATED TABLET
     Route: 048
     Dates: start: 20161220, end: 20170108
  7. TAMSULOSIN [Concomitant]
     Active Substance: TAMSULOSIN
     Indication: BENIGN PROSTATIC HYPERPLASIA
     Dosage: TABLET

REACTIONS (4)
  - Death [Fatal]
  - Pruritus [Not Recovered/Not Resolved]
  - Hepatic failure [Fatal]
  - Fatigue [Unknown]

NARRATIVE: CASE EVENT DATE: 20161208
